FAERS Safety Report 6015553-X (Version None)
Quarter: 2008Q4

REPORT INFORMATION
  Report Type: 
  Country: None (occurrence: None)
  Receive Date: 20081219
  Receipt Date: 20081219
  Transmission Date: 20090506
  Serious: Yes (Other)
  Sender: FDA-Public Use
  Company Number: None

PATIENT
  Sex: Female
  Weight: 65 kg

DRUGS (11)
  1. NEURONTIN [Suspect]
     Dosage: 300MG CAPSULE 600 MG TID ORAL
     Route: 048
     Dates: start: 20081010, end: 20081218
  2. FLEXERIL [Concomitant]
  3. FOSAMAX [Concomitant]
  4. IBUPROFEN TABLETS [Concomitant]
  5. LIPITOR [Concomitant]
  6. METANX [Concomitant]
  7. NEXIUM [Concomitant]
  8. OXYCODONE [Concomitant]
  9. PROMETRIUM [Concomitant]
  10. VALIUM [Concomitant]
  11. VIVELLE PATCH (ESTRADIOL PATCH) [Concomitant]

REACTIONS (2)
  - HYPERPHAGIA [None]
  - WEIGHT INCREASED [None]
